FAERS Safety Report 8196716-4 (Version None)
Quarter: 2012Q1

REPORT INFORMATION
  Report Type: 
  Country: None (occurrence: None)
  Receive Date: 20120309
  Receipt Date: 20120227
  Transmission Date: 20120608
  Serious: Yes (Hospitalization)
  Sender: FDA-Public Use
  Company Number: PHEH2012US002595

PATIENT
  Age: 52 Year
  Sex: Male

DRUGS (2)
  1. CLOZAPINE [Suspect]
     Dosage: UNK UKN, UNK
  2. CLOZARIL [Suspect]
     Dosage: UNK UKN, UNK

REACTIONS (3)
  - AGGRESSION [None]
  - DRUG INEFFECTIVE [None]
  - MALAISE [None]
